FAERS Safety Report 11435219 (Version 2)
Quarter: 2015Q3

REPORT INFORMATION
  Report Type: Spontaneous
  Country: JP (occurrence: JP)
  Receive Date: 20150831
  Receipt Date: 20150923
  Transmission Date: 20151125
  Serious: Yes (Other)
  Sender: FDA-Public Use
  Company Number: JP-SA-2015SA128544

PATIENT
  Age: 68 Year
  Sex: Male

DRUGS (8)
  1. DIOVAN [Concomitant]
     Active Substance: VALSARTAN
  2. ARTIST [Concomitant]
     Active Substance: CARVEDILOL
  3. ASPIRIN. [Concomitant]
     Active Substance: ASPIRIN
  4. ITOROL [Concomitant]
     Active Substance: ISOSORBIDE MONONITRATE
  5. LIVALO [Concomitant]
     Active Substance: PITAVASTATIN CALCIUM
  6. PLAVIX [Suspect]
     Active Substance: CLOPIDOGREL BISULFATE
     Indication: CORONARY ARTERIAL STENT INSERTION
     Route: 048
     Dates: end: 20101216
  7. CONIEL [Concomitant]
     Active Substance: BENIDIPINE HYDROCHLORIDE
  8. SIGMART [Concomitant]
     Active Substance: NICORANDIL

REACTIONS (5)
  - Pericardial effusion [Recovered/Resolved]
  - Gastrointestinal disorder [Recovered/Resolved]
  - Gastrooesophageal reflux disease [Recovered/Resolved]
  - Diarrhoea [Recovered/Resolved]
  - Nausea [Recovered/Resolved]

NARRATIVE: CASE EVENT DATE: 20101216
